FAERS Safety Report 10276417 (Version 1)
Quarter: 2014Q3

REPORT INFORMATION
  Report Type: Spontaneous
  Country: ES (occurrence: ES)
  Receive Date: 20140703
  Receipt Date: 20140703
  Transmission Date: 20150326
  Serious: Yes (Death, Other)
  Sender: FDA-Public Use
  Company Number: PHHY2014ES081431

PATIENT
  Sex: Male

DRUGS (3)
  1. CICLOSPORIN [Suspect]
     Active Substance: CYCLOSPORINE
     Indication: HISTIOCYTOSIS HAEMATOPHAGIC
  2. DEXAMETHASONE. [Suspect]
     Active Substance: DEXAMETHASONE
     Indication: HISTIOCYTOSIS HAEMATOPHAGIC
  3. ETOPOSIDE. [Suspect]
     Active Substance: ETOPOSIDE

REACTIONS (6)
  - Drug ineffective [Unknown]
  - Hypertensive emergency [Unknown]
  - Cardiac hypertrophy [Unknown]
  - Central nervous system haemorrhage [Unknown]
  - Pulmonary haemorrhage [Fatal]
  - Multi-organ failure [Fatal]
